FAERS Safety Report 5989905-8 (Version None)
Quarter: 2008Q4

REPORT INFORMATION
  Report Type: 
  Country: None (occurrence: None)
  Receive Date: 20081210
  Receipt Date: 20081124
  Transmission Date: 20090506
  Serious: Yes (Other)
  Sender: FDA-Public Use
  Company Number: FON_00021_2008

PATIENT
  Age: 56 Year
  Sex: Male

DRUGS (2)
  1. ROCALTROL [Suspect]
     Indication: HYPERPARATHYROIDISM
     Dosage: (0.25 UG 2X/WEEK ORAL)
     Route: 048
     Dates: start: 20010101
  2. CALCIUM CARBONATE [Concomitant]

REACTIONS (1)
  - SEXUAL DYSFUNCTION [None]
